FAERS Safety Report 5265432-0 (Version None)
Quarter: 2007Q1

REPORT INFORMATION
  Report Type: 
  Country: None (occurrence: None)
  Receive Date: 20070314
  Receipt Date: 20070302
  Transmission Date: 20070707
  Serious: Yes (Other)
  Sender: FDA-Public Use
  Company Number: US-SHR-US-2006-038019

PATIENT
  Age: 51 Year
  Sex: Female
  Weight: 57 kg

DRUGS (9)
  1. BETASERON [Suspect]
     Indication: SECONDARY PROGRESSIVE MULTIPLE SCLEROSIS
     Dosage: 8 MIU, EVERY 2D
     Route: 058
     Dates: start: 19940805
  2. TIZANIDINE HCL [Concomitant]
     Dosage: 4 MG, SOMETIMES 8 MG AT NIGHT
     Route: 048
     Dates: start: 20010101
  3. NEXIUM [Concomitant]
     Dates: start: 20060701, end: 20061101
  4. OMEPRAZOLE [Concomitant]
     Dosage: 20 MG, 2X/DAY
     Route: 048
     Dates: start: 20061213
  5. TYLENOL [Concomitant]
     Dosage: STANDARD OF 2/NIGHT,SOMETIMES MO
     Route: 048
     Dates: start: 20060101
  6. ADVIL [Concomitant]
     Indication: PAIN IN EXTREMITY
     Dates: end: 20060101
  7. GLUCOSAMINE [Concomitant]
     Dosage: STANDARD DOSE
     Route: 048
  8. MULTI-VIT (VIT B, VIT E) [Concomitant]
     Dosage: STANDARD DOSE
  9. CALCIUM [Concomitant]
     Dosage: STANDARD DOSE

REACTIONS (6)
  - CHOLECYSTITIS [None]
  - CHOLELITHIASIS [None]
  - FATIGUE [None]
  - GASTRITIS [None]
  - GASTROOESOPHAGEAL REFLUX DISEASE [None]
  - LIPOMA [None]
